FAERS Safety Report 5124002-5 (Version None)
Quarter: 2006Q4

REPORT INFORMATION
  Report Type: 
  Country: None (occurrence: None)
  Receive Date: 20061010
  Receipt Date: 20060420
  Transmission Date: 20070319
  Serious: Yes (Hospitalization)
  Sender: FDA-Public Use
  Company Number: JP-MERCK-0604USA03639

PATIENT
  Age: 62 Year
  Sex: Male

DRUGS (3)
  1. COZAAR [Suspect]
     Indication: HYPERTENSION
     Route: 048
     Dates: start: 20060311, end: 20060420
  2. BENZBROMARONE [Concomitant]
     Indication: GOUT
     Route: 048
     Dates: start: 20060316, end: 20060507
  3. URALYT [Concomitant]
     Indication: GOUT
     Route: 048
     Dates: start: 20060316, end: 20060507

REACTIONS (1)
  - MUSCULAR WEAKNESS [None]
